FAERS Safety Report 25715888 (Version 1)
Quarter: 2025Q3

REPORT INFORMATION
  Report Type: Spontaneous
  Country: US (occurrence: None)
  Receive Date: 20250821
  Receipt Date: 20250821
  Transmission Date: 20251021
  Serious: No
  Sender: FDA-CTU
  Company Number: None

PATIENT
  Age: 48 Year
  Sex: Female

DRUGS (4)
  1. JAKAFI [Suspect]
     Active Substance: RUXOLITINIB
     Dosage: FREQUENCY : TWICE A DAY;?
     Route: 048
     Dates: start: 20250619
  2. BUPROPION [Concomitant]
     Active Substance: BUPROPION
     Dates: start: 20250620
  3. PANTOPRAZOLE [Concomitant]
     Active Substance: PANTOPRAZOLE
     Dates: start: 20250620
  4. ELIQUIS [Concomitant]
     Active Substance: APIXABAN
     Dates: start: 20250620

REACTIONS (1)
  - Rash [None]

NARRATIVE: CASE EVENT DATE: 20250821
